FAERS Safety Report 7868101-3 (Version None)
Quarter: 2011Q4

REPORT INFORMATION
  Report Type: 
  Country: None (occurrence: None)
  Receive Date: 20111028
  Receipt Date: 20111019
  Transmission Date: 20120403
  Serious: Yes (Hospitalization, Other)
  Sender: FDA-Public Use
  Company Number: US-ASTRAZENECA-2011SE58960

PATIENT
  Age: 86 Year
  Sex: Female
  Weight: 59 kg

DRUGS (16)
  1. RISPERIDONE [Concomitant]
     Dates: start: 20080101
  2. SEROQUEL [Suspect]
     Indication: BIPOLAR DISORDER
     Route: 048
     Dates: start: 20030101
  3. REMERON [Concomitant]
     Dates: start: 20060101
  4. SEROQUEL [Suspect]
     Route: 048
  5. DONEPEZIL HCL [Concomitant]
     Dates: start: 20100101
  6. ROZEREM [Concomitant]
     Dates: start: 20060101
  7. AMLODIPINE [Concomitant]
  8. FLOVENT [Concomitant]
     Dosage: 110 MCG BID
  9. VALPROIC ACID [Concomitant]
  10. SEROQUEL [Suspect]
     Dosage: 25 MG IN THE MORNING 200 MG AT NIGHT
     Route: 048
  11. ASPIRIN [Concomitant]
     Dosage: QAM
  12. LEVOTHYROXINE SODIUM [Concomitant]
     Dates: start: 19910101
  13. NAMENDA [Concomitant]
     Dates: start: 20060101
  14. ARICEPT [Concomitant]
     Dates: start: 20060101
  15. RISPERIDONE [Concomitant]
     Dates: start: 20060101
  16. PANTOPRAZOLE [Concomitant]

REACTIONS (9)
  - HIP FRACTURE [None]
  - DECUBITUS ULCER [None]
  - ARTHRITIS [None]
  - BEDRIDDEN [None]
  - FALL [None]
  - CONSTIPATION [None]
  - PNEUMONIA [None]
  - URINARY TRACT INFECTION [None]
  - DEMENTIA ALZHEIMER'S TYPE [None]
